FAERS Safety Report 7472072-1 (Version None)
Quarter: 2011Q2

REPORT INFORMATION
  Report Type: 
  Country: None (occurrence: None)
  Receive Date: 20110511
  Receipt Date: 20101130
  Transmission Date: 20111010
  Serious: No
  Sender: FDA-Public Use
  Company Number: A0896969A

PATIENT
  Age: 83 Year
  Sex: Female
  Weight: 58.2 kg

DRUGS (15)
  1. HERCEPTIN [Concomitant]
  2. MULTI-VITAMIN [Concomitant]
  3. TYKERB [Suspect]
     Indication: BREAST CANCER
     Dosage: 3CAP PER DAY
     Route: 048
     Dates: start: 20101123, end: 20101207
  4. LUTEIN [Concomitant]
  5. LIPITOR [Concomitant]
  6. ESTER C [Concomitant]
  7. CO-Q10 [Concomitant]
  8. CALCIUM [Concomitant]
  9. GLUCOSAMINE [Concomitant]
  10. ETODOLAC [Concomitant]
  11. ACIPHEX [Concomitant]
  12. ASPIRIN [Concomitant]
  13. HYDROCHLOROTHIAZIDE [Concomitant]
  14. FISH OIL [Concomitant]
  15. TYLENOL W/ CODEINE [Concomitant]

REACTIONS (2)
  - DIARRHOEA [None]
  - ABDOMINAL DISTENSION [None]
